FAERS Safety Report 15223162 (Version 1)
Quarter: 2018Q3

REPORT INFORMATION
  Report Type: Spontaneous
  Country: US (occurrence: US)
  Receive Date: 20180705
  Receipt Date: 20180705
  Transmission Date: 20181010
  Serious: Yes (Other)
  Sender: FDA-Public Use
  Company Number: None

PATIENT
  Age: 52 Year
  Sex: Male

DRUGS (12)
  1. POT CL MICRO [Concomitant]
  2. TAMULOSIN [Concomitant]
     Active Substance: TAMSULOSIN
  3. TRAMADOL. [Concomitant]
     Active Substance: TRAMADOL
  4. LORAZEPAM. [Concomitant]
     Active Substance: LORAZEPAM
  5. ZOLPIDEM [Concomitant]
     Active Substance: ZOLPIDEM\ZOLPIDEM TARTRATE
  6. FOLIC ACID. [Concomitant]
     Active Substance: FOLIC ACID
  7. ELIQUIS. [Concomitant]
  8. FERROUS SULF [Concomitant]
     Active Substance: FERROUS SULFATE
  9. GABAPENTIN. [Concomitant]
     Active Substance: GABAPENTIN
  10. FUROSEMIDE. [Concomitant]
     Active Substance: FUROSEMIDE
  11. ALECENSA [Suspect]
     Active Substance: ALECTINIB HYDROCHLORIDE
  12. HYDROCO/APAP [Concomitant]
     Active Substance: ACETAMINOPHEN\HYDROCODONE

REACTIONS (3)
  - Nausea [None]
  - Drug dose omission [None]
  - Constipation [None]

NARRATIVE: CASE EVENT DATE: 201806
